FAERS Safety Report 21992996 (Version 2)
Quarter: 2023Q1

REPORT INFORMATION
  Report Type: Spontaneous
  Country: CN (occurrence: CN)
  Receive Date: 20230215
  Receipt Date: 20230321
  Transmission Date: 20230417
  Serious: Yes (Death, Other)
  Sender: FDA-Public Use
  Company Number: CN-AMGEN-CHNSP2023025061

PATIENT
  Age: 3 Month
  Sex: Male

DRUGS (5)
  1. BLINCYTO [Suspect]
     Active Substance: BLINATUMOMAB
     Indication: Acute biphenotypic leukaemia
     Dosage: 5 MICROGRAM/M^2 (DAY 1)
     Route: 065
  2. BLINCYTO [Suspect]
     Active Substance: BLINATUMOMAB
     Dosage: 10 MICROGRAM/M^2 (DAY 2)
     Route: 065
  3. BLINCYTO [Suspect]
     Active Substance: BLINATUMOMAB
     Dosage: 15 MICROGRAM/M^2 (DAYS 3-28)
     Route: 065
  4. FLUDARABINE [Concomitant]
     Active Substance: FLUDARABINE PHOSPHATE
     Indication: Chemotherapy
     Dosage: 25 MILLIGRAM/M^2 QD FOR 3 DAYS (-4 TO -2 DAYS OR -5 TO -3 DAYS)
     Route: 065
  5. CYCLOPHOSPHAMIDE [Concomitant]
     Active Substance: CYCLOPHOSPHAMIDE
     Indication: Lymphodepletion
     Dosage: 20 MILLIGRAM/KG QD (FOR 3 DAYS (-4 TO -2 DAYS OR -5 TO -3 DAYS)
     Route: 065

REACTIONS (6)
  - Chloroma [Unknown]
  - Lineage switch leukaemia [Unknown]
  - Cytokine release syndrome [Recovered/Resolved]
  - Acute lymphocytic leukaemia recurrent [Fatal]
  - Off label use [Unknown]
  - Bronchitis [Unknown]
